FAERS Safety Report 16733488 (Version 1)
Quarter: 2019Q3

REPORT INFORMATION
  Report Type: Spontaneous
  Country: FR (occurrence: FR)
  Receive Date: 20190823
  Receipt Date: 20190823
  Transmission Date: 20191005
  Serious: Yes (Life-Threatening, Hospitalization)
  Sender: FDA-Public Use
  Company Number: FR-TEVA-2019-FR-1095347

PATIENT
  Age: 36 Year
  Sex: Male
  Weight: 71 kg

DRUGS (3)
  1. BLEOMYCINE [Suspect]
     Active Substance: BLEOMYCIN SULFATE
     Indication: TESTIS CANCER
     Dosage: 30 MG, CYCLICAL
     Route: 041
     Dates: start: 20190701, end: 20190708
  2. ETOPOSIDE. [Suspect]
     Active Substance: ETOPOSIDE
     Indication: TESTIS CANCER
     Dosage: 100 MG/M2 PER DAY
     Route: 041
     Dates: start: 20190701, end: 20190705
  3. CISPLATINE [Suspect]
     Active Substance: CISPLATIN
     Indication: TESTIS CANCER
     Dosage: 20 MG/M2
     Route: 041
     Dates: start: 20190701, end: 20190705

REACTIONS (2)
  - Agranulocytosis [Not Recovered/Not Resolved]
  - Septic shock [Not Recovered/Not Resolved]

NARRATIVE: CASE EVENT DATE: 20190711
